FAERS Safety Report 20263022 (Version 2)
Quarter: 2022Q1

REPORT INFORMATION
  Report Type: Spontaneous
  Country: AU (occurrence: AU)
  Receive Date: 20211231
  Receipt Date: 20220129
  Transmission Date: 20220423
  Serious: Yes (Hospitalization, Other)
  Sender: FDA-Public Use
  Company Number: AU-ABBVIE-21K-008-4216562-00

PATIENT
  Age: 68 Year
  Sex: Female

DRUGS (2)
  1. HUMIRA [Suspect]
     Active Substance: ADALIMUMAB
     Indication: Rheumatoid arthritis
     Route: 058
  2. METHOTREXATE [Concomitant]
     Active Substance: METHOTREXATE
     Indication: Rheumatoid arthritis
     Route: 048

REACTIONS (25)
  - Necrotising scleritis [Unknown]
  - Cataract [Unknown]
  - Acute myocardial infarction [Recovered/Resolved]
  - Sepsis [Recovered/Resolved]
  - Pain [Unknown]
  - Open angle glaucoma [Unknown]
  - Intraocular pressure increased [Recovered/Resolved]
  - Scleritis [Unknown]
  - Inflammatory marker increased [Unknown]
  - Choroidal effusion [Unknown]
  - Procedural pain [Unknown]
  - Cycloplegia [Unknown]
  - Scleral disorder [Unknown]
  - Ocular procedural complication [Unknown]
  - Intraocular pressure decreased [Unknown]
  - Retinal disorder [Unknown]
  - Visual impairment [Unknown]
  - Paranasal sinus hypersecretion [Unknown]
  - Visual acuity reduced [Unknown]
  - Hypertension [Unknown]
  - Hypercholesterolaemia [Unknown]
  - Blebitis [Unknown]
  - Periorbital cellulitis [Unknown]
  - Pyelonephritis [Recovered/Resolved]
  - Eye infection staphylococcal [Unknown]
